FAERS Safety Report 11838334 (Version 1)
Quarter: 2015Q4

REPORT INFORMATION
  Report Type: Spontaneous
  Country: US (occurrence: US)
  Receive Date: 20151215
  Receipt Date: 20151215
  Transmission Date: 20160305
  Serious: No
  Sender: FDA-Public Use
  Company Number: US-ACTELION PHARMACEUTICALS US, INC.-A-NJ2015-128301

PATIENT
  Age: 84 Year
  Sex: Female

DRUGS (12)
  1. HYOSCYAMINE SULFATE. [Concomitant]
     Active Substance: HYOSCYAMINE SULFATE
  2. LISINOPRIL. [Concomitant]
     Active Substance: LISINOPRIL
  3. ATROVENT [Concomitant]
     Active Substance: IPRATROPIUM BROMIDE
  4. OPSUMIT [Suspect]
     Active Substance: MACITENTAN
     Indication: PULMONARY ARTERIAL HYPERTENSION
     Dosage: 10 MG, QD
     Route: 048
     Dates: start: 20151008
  5. FUROSEMIDE. [Concomitant]
     Active Substance: FUROSEMIDE
  6. HYDROCHLOROTHIAZIDE. [Concomitant]
     Active Substance: HYDROCHLOROTHIAZIDE
  7. SYNTHROID [Concomitant]
     Active Substance: LEVOTHYROXINE SODIUM
  8. CELEBREX [Concomitant]
     Active Substance: CELECOXIB
  9. CLONIDINE. [Concomitant]
     Active Substance: CLONIDINE
  10. SIMVASTATIN. [Concomitant]
     Active Substance: SIMVASTATIN
  11. PRINIVIL [Concomitant]
     Active Substance: LISINOPRIL
  12. ESTRACE [Concomitant]
     Active Substance: ESTRADIOL

REACTIONS (2)
  - Nasal discomfort [Not Recovered/Not Resolved]
  - Nasal dryness [Not Recovered/Not Resolved]

NARRATIVE: CASE EVENT DATE: 20151026
